FAERS Safety Report 10649443 (Version 2)
Quarter: 2014Q4

REPORT INFORMATION
  Report Type: Spontaneous
  Country: JP (occurrence: JP)
  Receive Date: 20141212
  Receipt Date: 20141212
  Transmission Date: 20150529
  Serious: Yes (Hospitalization)
  Sender: FDA-Public Use
  Company Number: JP-AMGEN-JPNSP2014095418

PATIENT
  Age: 49 Year
  Sex: Female
  Weight: 52.1 kg

DRUGS (5)
  1. ISOVORIN                           /06682103/ [Concomitant]
     Active Substance: LEUCOVORIN CALCIUM
     Indication: RECTAL CANCER RECURRENT
     Dosage: 150 MG, Q2WEEKS
     Route: 041
     Dates: start: 20141113, end: 20141113
  2. VECTIBIX [Suspect]
     Active Substance: PANITUMUMAB
     Indication: RECTAL CANCER RECURRENT
     Dosage: 300 MG, Q3WEEKS
     Route: 041
     Dates: start: 20141113, end: 20141113
  3. ALOXI [Concomitant]
     Active Substance: PALONOSETRON HYDROCHLORIDE
     Indication: PROPHYLAXIS OF NAUSEA AND VOMITING
     Dosage: 0.75 MG, Q2WEEKS
     Route: 041
     Dates: start: 20141113, end: 20141113
  4. TOPOTECIN [Suspect]
     Active Substance: IRINOTECAN HYDROCHLORIDE
     Indication: RECTAL CANCER RECURRENT
     Dosage: 220 MG, Q2WEEKS
     Route: 041
     Dates: start: 20141113, end: 20141113
  5. DECADRON                           /00016002/ [Concomitant]
     Active Substance: DEXAMETHASONE
     Dosage: 6.6 MG, Q2WEEKS
     Route: 041
     Dates: start: 20141113, end: 20141113

REACTIONS (3)
  - Cold sweat [Unknown]
  - Dyspnoea [Recovered/Resolved]
  - Nausea [Recovering/Resolving]

NARRATIVE: CASE EVENT DATE: 20141113
